FAERS Safety Report 9640762 (Version 1)
Quarter: 2013Q4

REPORT INFORMATION
  Report Type: Spontaneous
  Country: US (occurrence: None)
  Receive Date: 20131022
  Receipt Date: 20131022
  Transmission Date: 20140711
  Serious: Yes (Disabling)
  Sender: FDA-Public Use
  Company Number: None

PATIENT
  Age: 23 Year
  Sex: Female
  Weight: 53.52 kg

DRUGS (1)
  1. LEVAQUIN [Suspect]
     Indication: UPPER RESPIRATORY TRACT INFECTION
     Dosage: 1 PILL
     Route: 048
     Dates: start: 20130727, end: 20130728

REACTIONS (7)
  - Dizziness [None]
  - Nausea [None]
  - Balance disorder [None]
  - Vision blurred [None]
  - Muscle strain [None]
  - Tendon disorder [None]
  - Impaired healing [None]
